FAERS Safety Report 23499565 (Version 1)
Quarter: 2024Q1

REPORT INFORMATION
  Report Type: Other
  Country: NZ (occurrence: NZ)
  Receive Date: 20240208
  Receipt Date: 20240208
  Transmission Date: 20240410
  Serious: Yes (Other)
  Sender: FDA-Public Use
  Company Number: NZ-TASMAN PHARMA, INC.-2024TSM00040

PATIENT
  Age: 74 Year
  Sex: Female

DRUGS (4)
  1. CLOZAPINE [Suspect]
     Active Substance: CLOZAPINE
  2. CHOLECALCIFEROL [Suspect]
     Active Substance: CHOLECALCIFEROL
  3. FLUTICASONE PROPIONATE\SALMETEROL XINAFOATE [Concomitant]
     Active Substance: FLUTICASONE PROPIONATE\SALMETEROL XINAFOATE
  4. ATORVASTATIN [Concomitant]
     Active Substance: ATORVASTATIN

REACTIONS (1)
  - Lung neoplasm malignant [Unknown]
